FAERS Safety Report 5689436-9 (Version None)
Quarter: 2008Q1

REPORT INFORMATION
  Report Type: 
  Country: None (occurrence: None)
  Receive Date: 20080331
  Receipt Date: 20080318
  Transmission Date: 20080703
  Serious: Yes (Hospitalization, Other)
  Sender: FDA-Public Use
  Company Number: US-AMGEN-US270450

PATIENT
  Sex: Female
  Weight: 65.8 kg

DRUGS (5)
  1. PROCRIT [Suspect]
     Indication: ANAEMIA
     Dates: start: 20010101
  2. UNSPECIFIED ANTIHYPERTENSIVE AGENT [Concomitant]
     Dates: start: 20010101
  3. UNSPECIFIED GASTROINTESTINAL AGENT [Concomitant]
  4. REVLIMID [Concomitant]
     Dates: start: 20080101
  5. UNSPECIFIED MEDICATION [Concomitant]

REACTIONS (4)
  - ADVERSE DRUG REACTION [None]
  - HAEMOGLOBIN DECREASED [None]
  - OEDEMA PERIPHERAL [None]
  - RENAL MASS [None]
